FAERS Safety Report 5851716-1 (Version None)
Quarter: 2008Q3

REPORT INFORMATION
  Report Type: 
  Country: None (occurrence: None)
  Receive Date: 20080820
  Receipt Date: 20080818
  Transmission Date: 20090109
  Serious: Yes (Death, Hospitalization)
  Sender: FDA-Public Use
  Company Number: GB-BOEHRINGER INGELHEIM GMBH, GERMANY-2003-UK-00182UK

PATIENT
  Sex: Female

DRUGS (2)
  1. MOBIC [Suspect]
     Indication: OSTEOARTHRITIS
  2. ACETAMINOPHEN W/ CODEINE [Concomitant]

REACTIONS (1)
  - HAEMORRHAGE [None]
